FAERS Safety Report 5160837-0 (Version None)
Quarter: 2006Q4

REPORT INFORMATION
  Report Type: 
  Country: None (occurrence: None)
  Receive Date: 20061121
  Receipt Date: 20061107
  Transmission Date: 20070319
  Serious: Yes (Hospitalization, Disabling)
  Sender: FDA-Public Use
  Company Number: POMP-10874

PATIENT
  Age: 3 Year
  Sex: Male
  Weight: 14.9 kg

DRUGS (9)
  1. MYOZYME [Suspect]
     Indication: GLYCOGEN STORAGE DISEASE TYPE II
     Dosage: 20 MG/KG Q2WKS IV
     Route: 042
     Dates: start: 20060701
  2. MYOZYME [Suspect]
     Indication: GLYCOGEN STORAGE DISEASE TYPE II
     Dosage: 20 MG/KG Q2WKS IV
     Route: 042
     Dates: start: 20050629, end: 20060609
  3. MYOZYME [Suspect]
     Indication: GLYCOGEN STORAGE DISEASE TYPE II
     Dosage: 20 MG/KG Q2WKS IV
     Route: 042
     Dates: start: 20030925, end: 20050609
  4. MYOZYME [Suspect]
  5. AMBROXOL [Concomitant]
  6. CARDIOLOL [Concomitant]
  7. ISOMIL [Concomitant]
  8. BIOCAL TAB [Concomitant]
  9. ANTIBIOPHILUS [Concomitant]

REACTIONS (6)
  - GASTROENTERITIS ROTAVIRUS [None]
  - LOBAR PNEUMONIA [None]
  - PSEUDOMONAS INFECTION [None]
  - PYODERMA GANGRENOSUM [None]
  - SKIN HYPERPIGMENTATION [None]
  - TYPE III IMMUNE COMPLEX MEDIATED REACTION [None]
